FAERS Safety Report 8200052-7 (Version None)
Quarter: 2012Q1

REPORT INFORMATION
  Report Type: 
  Country: None (occurrence: None)
  Receive Date: 20120306
  Receipt Date: 20120223
  Transmission Date: 20120608
  Serious: Yes (Other)
  Sender: FDA-Public Use
  Company Number: TPA2012A01015

PATIENT
  Age: 8 Decade
  Sex: Female

DRUGS (3)
  1. GLUCOPHAGE [Concomitant]
  2. ACTOS [Suspect]
     Dosage: 30 MG, 1 IN 1 D, PER ORAL, 45 MG, 1 IN 1 D, ORAL
     Route: 048
     Dates: end: 20110516
  3. ACTOS [Suspect]
     Dosage: 30 MG, 1 IN 1 D, PER ORAL, 45 MG, 1 IN 1 D, ORAL
     Route: 048
     Dates: start: 20070101

REACTIONS (2)
  - URINARY TRACT INFECTION [None]
  - BLADDER CANCER [None]
